FAERS Safety Report 8851708 (Version 3)
Quarter: 2013Q3

REPORT INFORMATION
  Report Type: Spontaneous
  Country: US (occurrence: None)
  Receive Date: 20121017
  Receipt Date: 20130815
  Transmission Date: 20140515
  Serious: Yes (Hospitalization, Other)
  Sender: FDA-Public Use
  Company Number: ADR-2012-01596

PATIENT
  Age: 44 Year
  Sex: Male

DRUGS (1)
  1. BACLOFEN [Suspect]
     Indication: MUSCLE SPASTICITY

REACTIONS (13)
  - Muscle spasticity [None]
  - Wound complication [None]
  - Musculoskeletal disorder [None]
  - Device dislocation [None]
  - Implant site extravasation [None]
  - Muscle spasticity [None]
  - Pain [None]
  - Posture abnormal [None]
  - Infusion site pain [None]
  - Infusion site swelling [None]
  - Muscle spasms [None]
  - Medical device complication [None]
  - Implant site extravasation [None]
